FAERS Safety Report 15338411 (Version 1)
Quarter: 2018Q3

REPORT INFORMATION
  Report Type: Spontaneous
  Country: US (occurrence: US)
  Receive Date: 20180831
  Receipt Date: 20180831
  Transmission Date: 20181010
  Serious: Yes (Hospitalization)
  Sender: FDA-Public Use
  Company Number: US-JNJFOC-20180837841

PATIENT
  Age: 45 Year
  Sex: Female

DRUGS (1)
  1. INVOKAMET [Suspect]
     Active Substance: CANAGLIFLOZIN\METFORMIN HYDROCHLORIDE
     Indication: TYPE 2 DIABETES MELLITUS
     Route: 048
     Dates: start: 20160912

REACTIONS (5)
  - Diabetic ketoacidosis [Recovering/Resolving]
  - Limb amputation [Unknown]
  - Osteomyelitis [Unknown]
  - Diabetic gangrene [Unknown]
  - Diabetic foot infection [Recovering/Resolving]

NARRATIVE: CASE EVENT DATE: 201609
